FAERS Safety Report 7876821-X (Version None)
Quarter: 2011Q4

REPORT INFORMATION
  Report Type: 
  Country: None (occurrence: None)
  Receive Date: 20111031
  Receipt Date: 20111007
  Transmission Date: 20120403
  Serious: Yes (Other)
  Sender: FDA-Public Use
  Company Number: CA-JNJFOC-20111011699

PATIENT
  Sex: Male
  Weight: 76.5 kg

DRUGS (6)
  1. REMICADE [Suspect]
     Route: 042
     Dates: start: 20111007
  2. REMICADE [Suspect]
     Indication: CROHN'S DISEASE
     Route: 042
     Dates: start: 20110928
  3. RABEPRAZOLE SODIUM [Concomitant]
  4. PREDNISONE [Concomitant]
     Route: 048
  5. IMURAN [Concomitant]
  6. SOLU-CORTEF [Concomitant]
     Indication: PREMEDICATION
     Route: 042

REACTIONS (3)
  - INFUSION RELATED REACTION [None]
  - PALLOR [None]
  - LOSS OF CONSCIOUSNESS [None]
